FAERS Safety Report 9499519 (Version 1)
Quarter: 2013Q1

REPORT INFORMATION
  Report Type: Spontaneous
  Country: US (occurrence: None)
  Receive Date: 20130107
  Receipt Date: 20130107
  Transmission Date: 20140127
  Serious: No
  Sender: FDA-Public Use
  Company Number: PHEH2012US020214

PATIENT
  Age: 44 Year
  Sex: Female
  Weight: 97.5 kg

DRUGS (6)
  1. GILENYA [Suspect]
     Indication: MULTIPLE SCLEROSIS
     Route: 048
     Dates: start: 20121010
  2. SENTANYL PATCH [Concomitant]
  3. PERCOCET (OXYCODONE HYDROCHLORIDE PARACETAMOL) [Concomitant]
  4. WELLBUTRIN (BUPROPION HYDROCHLORIDE) [Concomitant]
  5. PROZAC (FLUOXETINE HYDROCHLORIDE) [Concomitant]
  6. ABILIFY (ARIPIPRAZOLE) [Concomitant]

REACTIONS (7)
  - Nausea [None]
  - Decreased appetite [None]
  - Fatigue [None]
  - Heart rate decreased [None]
  - Dizziness [None]
  - Hyperhidrosis [None]
  - Hypopnoea [None]
